FAERS Safety Report 6628266-8 (Version None)
Quarter: 2010Q1

REPORT INFORMATION
  Report Type: 
  Country: None (occurrence: None)
  Receive Date: 20100311
  Receipt Date: 20100302
  Transmission Date: 20100710
  Serious: Yes (Other)
  Sender: FDA-Public Use
  Company Number: JP-ASTRAZENECA-2010SE09775

PATIENT
  Sex: Male
  Weight: 112 kg

DRUGS (15)
  1. BLOPRESS PLUS [Suspect]
     Indication: HYPERTENSION
     Route: 048
     Dates: start: 20090728
  2. METOPROLOL [Suspect]
     Indication: HYPERTENSION
     Route: 048
     Dates: start: 20050120
  3. RASILEZ [Suspect]
     Indication: HYPERTENSION
     Route: 048
     Dates: start: 20081201
  4. CARMEN [Suspect]
     Indication: HYPERTENSION
     Route: 048
     Dates: start: 20081201
  5. CALCIUM CHANNEL BLOCKERS [Concomitant]
     Route: 065
  6. BETA BLOCKING AGENTS [Concomitant]
     Route: 065
  7. DIURETICS [Concomitant]
     Route: 065
  8. PLATELET AGGREGATION INHIBITORS [Concomitant]
     Route: 065
  9. STATIN [Concomitant]
     Route: 065
  10. ANGIOTENSIN RECEPTOR BLOCKER [Concomitant]
     Route: 065
  11. FUROSEMIDE [Concomitant]
     Route: 048
     Dates: start: 20070116
  12. ACETYLSALICYLIC ACID [Concomitant]
     Route: 048
     Dates: start: 20050120
  13. ALLOPURINOL [Concomitant]
     Route: 048
     Dates: start: 20010115
  14. SIMVASTATIN [Concomitant]
     Route: 048
     Dates: start: 20050120
  15. SIMVASTATIN [Concomitant]
     Route: 048
     Dates: start: 20010115

REACTIONS (1)
  - HYPERTENSIVE CRISIS [None]
